FAERS Safety Report 10680852 (Version 1)
Quarter: 2014Q4

REPORT INFORMATION
  Report Type: Spontaneous
  Country: FR (occurrence: FR)
  Receive Date: 20141229
  Receipt Date: 20141229
  Transmission Date: 20150529
  Serious: Yes (Hospitalization)
  Sender: FDA-Public Use
  Company Number: FR-ASTRAZENECA-2014SE98980

PATIENT
  Age: 25319 Day
  Sex: Male

DRUGS (7)
  1. KARDEGIC [Interacting]
     Active Substance: ASPIRIN LYSINE
     Indication: ANTICOAGULANT THERAPY
     Route: 048
     Dates: start: 20141030
  2. CEFIXIME. [Concomitant]
     Active Substance: CEFIXIME
  3. KARDEGIC [Interacting]
     Active Substance: ASPIRIN LYSINE
     Indication: ANTICOAGULANT THERAPY
     Route: 048
  4. LAMALINE [Concomitant]
     Active Substance: ACETAMINOPHEN\CAFFEINE\OPIUM
  5. FORADIL [Concomitant]
     Active Substance: FORMOTEROL FUMARATE
  6. RAMIPRIL. [Concomitant]
     Active Substance: RAMIPRIL
  7. BRILIQUE [Suspect]
     Active Substance: TICAGRELOR
     Indication: CARDIAC DISORDER
     Route: 048
     Dates: end: 20141108

REACTIONS (3)
  - Drug interaction [Unknown]
  - Anaemia [Unknown]
  - Haematuria [Recovered/Resolved]

NARRATIVE: CASE EVENT DATE: 20141108
